FAERS Safety Report 8228802-4 (Version None)
Quarter: 2012Q1

REPORT INFORMATION
  Report Type: 
  Country: None (occurrence: None)
  Receive Date: 20120322
  Receipt Date: 20120315
  Transmission Date: 20120608
  Serious: Yes (Hospitalization)
  Sender: FDA-Public Use
  Company Number: US-GLAXOSMITHKLINE-A0970550A

PATIENT
  Age: 62 Year
  Sex: Female
  Weight: 66.7 kg

DRUGS (2)
  1. VELCADE [Suspect]
     Indication: MULTIPLE MYELOMA
     Dosage: 2.5MG CYCLIC
     Route: 042
     Dates: start: 20111109, end: 20120216
  2. ZOFRAN [Suspect]
     Indication: PREMEDICATION

REACTIONS (1)
  - ILEUS [None]
